FAERS Safety Report 9117986 (Version 1)
Quarter: 2013Q1

REPORT INFORMATION
  Report Type: Spontaneous
  Country: US (occurrence: US)
  Receive Date: 20130208
  Receipt Date: 20130208
  Transmission Date: 20140127
  Serious: Yes (Other)
  Sender: FDA-Public Use
  Company Number: US-ROCHE-1046905

PATIENT
  Age: 16 Year
  Sex: Male
  Weight: 68.1 kg

DRUGS (2)
  1. ACCUTANE [Suspect]
     Indication: ACNE
     Route: 048
     Dates: start: 2003, end: 2004
  2. ACCUTANE [Suspect]
     Route: 065
     Dates: start: 200410, end: 200502

REACTIONS (8)
  - Crohn^s disease [Unknown]
  - Inflammatory bowel disease [Unknown]
  - Depression [Unknown]
  - Suicidal ideation [Unknown]
  - Mental disorder [Unknown]
  - Lip dry [Unknown]
  - Dry skin [Unknown]
  - Headache [Unknown]
